FAERS Safety Report 4843597-X (Version None)
Quarter: 2005Q4

REPORT INFORMATION
  Report Type: 
  Country: None (occurrence: None)
  Receive Date: 20051202
  Receipt Date: 20051122
  Transmission Date: 20060501
  Serious: Yes (Death, Hospitalization)
  Sender: FDA-Public Use
  Company Number: BR-BRISTOL-MYERS SQUIBB COMPANY-13192018

PATIENT
  Age: 71 Year
  Sex: Female

DRUGS (5)
  1. CORGARD [Suspect]
     Indication: HYPERTENSION
     Route: 048
     Dates: start: 20051121, end: 20051121
  2. CORGARD [Suspect]
     Indication: HEART RATE INCREASED
     Route: 048
     Dates: start: 20051121, end: 20051121
  3. LOTENSIN [Concomitant]
  4. CLORANA [Concomitant]
  5. INSULIN [Concomitant]

REACTIONS (2)
  - HEART RATE INCREASED [None]
  - HYPOTENSION [None]
